FAERS Safety Report 4760015-0 (Version None)
Quarter: 2005Q3

REPORT INFORMATION
  Report Type: 
  Country: None (occurrence: None)
  Receive Date: 20050831
  Receipt Date: 20050818
  Transmission Date: 20060218
  Serious: Yes (Other)
  Sender: FDA-Public Use
  Company Number: 2005118832

PATIENT
  Sex: Female
  Weight: 67.1324 kg

DRUGS (15)
  1. PREDNISONE TAB [Suspect]
     Indication: RHEUMATOID ARTHRITIS
     Dosage: ORAL
     Route: 048
     Dates: start: 19530101
  2. ESTRING [Suspect]
     Indication: URETHRAL DISORDER
     Dosage: (1 IN 12 WK), VAGINAL
     Route: 067
     Dates: start: 19970101
  3. ESTRING [Suspect]
     Indication: VULVOVAGINAL DRYNESS
     Dosage: (1 IN 12 WK), VAGINAL
     Route: 067
     Dates: start: 19970101
  4. DETROL LA [Suspect]
     Indication: HYPERTONIC BLADDER
     Dates: end: 20050101
  5. BUFFERIN [Suspect]
     Indication: OSTEOARTHRITIS
     Dosage: ORAL
     Route: 048
     Dates: start: 19530101
  6. BUFFERIN [Suspect]
     Indication: RHEUMATOID ARTHRITIS
     Dosage: ORAL
     Route: 048
     Dates: start: 19530101
  7. FAMVIR [Suspect]
     Indication: HERPES SIMPLEX
     Dates: start: 20020101
  8. PROVIGIL [Suspect]
     Indication: SLEEP APNOEA SYNDROME
     Dates: start: 20030101
  9. CARTIA XT [Concomitant]
  10. VITAMIN C (VITAMIN C) [Concomitant]
  11. OMEPRAZOLE MAGNESIUM (OMEPRAZOLE MAGNESIUM) [Concomitant]
  12. CENTRUM SILVER (ASCORBIC ACID, CALCIUM, MINERALS NOS, RETINOL, TOCOPHE [Concomitant]
  13. CALCIUM WITH VITAMIN D (CALCIUM PHOSPHATE, CALCIUM SODIUM LACTATE, ERG [Concomitant]
  14. STRESSTABS WITH ZINC (ASCORBIC ACID, COPPER, TOCOPHERYL ACETATE, VITAM [Concomitant]
  15. SPIRONOLACTONE [Concomitant]

REACTIONS (13)
  - ARTHRITIS [None]
  - ATRIAL FIBRILLATION [None]
  - CONDITION AGGRAVATED [None]
  - HERPES SIMPLEX [None]
  - HYPERSENSITIVITY [None]
  - HYPERTONIC BLADDER [None]
  - HYPOACUSIS [None]
  - IMMUNE SYSTEM DISORDER [None]
  - OEDEMA PERIPHERAL [None]
  - OSTEOARTHRITIS [None]
  - SLEEP APNOEA SYNDROME [None]
  - URETHRAL DISORDER [None]
  - VULVOVAGINAL DRYNESS [None]
